FAERS Safety Report 6029361-7 (Version None)
Quarter: 2009Q1

REPORT INFORMATION
  Report Type: 
  Country: None (occurrence: None)
  Receive Date: 20090105
  Receipt Date: 20081223
  Transmission Date: 20090719
  Serious: Yes (Death, Hospitalization)
  Sender: FDA-Public Use
  Company Number: FON_00030_2008

PATIENT
  Sex: Male
  Weight: 53 kg

DRUGS (11)
  1. CALCITRIOL [Suspect]
     Indication: OSTEOPOROSIS PROPHYLAXIS
     Dosage: (0.25 UG ORAL)
     Route: 048
     Dates: start: 19950119, end: 19950604
  2. CALTRATE /00108001/ (CALTRATE - CALCIUM CARBONATE) (NOT SPECIFIED) [Suspect]
     Indication: OSTEOPOROSIS
     Dosage: (600 MG ORAL)
     Route: 048
     Dates: start: 19950119, end: 19950604
  3. PREDNISONE TAB [Concomitant]
  4. CYCLOSPORINE [Concomitant]
  5. AZATHIOPRINE [Concomitant]
  6. MYCOPHENOLATE MOFETIL [Concomitant]
  7. KETOCONAZOLE [Concomitant]
  8. CAPTOPRIL [Concomitant]
  9. ZANTAC [Concomitant]
  10. BACTRIM [Concomitant]
  11. LIPEX [Concomitant]

REACTIONS (13)
  - ANOREXIA [None]
  - ASTHENIA [None]
  - ATRIAL FLUTTER [None]
  - BRADYCARDIA [None]
  - DIZZINESS [None]
  - HEADACHE [None]
  - LETHARGY [None]
  - PRESYNCOPE [None]
  - PYREXIA [None]
  - SUDDEN DEATH [None]
  - SWELLING FACE [None]
  - TACHYCARDIA [None]
  - VISION BLURRED [None]
